FAERS Safety Report 15374266 (Version 1)
Quarter: 2018Q3

REPORT INFORMATION
  Report Type: Spontaneous
  Country: US (occurrence: US)
  Receive Date: 20180912
  Receipt Date: 20180912
  Transmission Date: 20181010
  Serious: Yes (Life-Threatening)
  Sender: FDA-Public Use
  Company Number: US-LPDUSPRD-20171746

PATIENT
  Age: 77 Year
  Sex: Female
  Weight: 75.3 kg

DRUGS (1)
  1. INJECTAFER [Suspect]
     Active Substance: FERRIC CARBOXYMALTOSE
     Dosage: 750 MG PRESCRIBED(GIVEN 1 ML)
     Route: 042
     Dates: start: 20171030, end: 20171030

REACTIONS (1)
  - Anaphylactic reaction [Unknown]

NARRATIVE: CASE EVENT DATE: 20171030
